FAERS Safety Report 18060215 (Version 1)
Quarter: 2020Q3

REPORT INFORMATION
  Report Type: Spontaneous
  Country: US (occurrence: US)
  Receive Date: 20200723
  Receipt Date: 20200723
  Transmission Date: 20201103
  Serious: No
  Sender: FDA-Public Use
  Company Number: US-AJANTA PHARMA USA INC.-2087651

PATIENT
  Age: 64 Year
  Sex: Male

DRUGS (1)
  1. TADALAFIL (ANDA 209654) [Suspect]
     Active Substance: TADALAFIL
     Dates: start: 202006

REACTIONS (1)
  - Drug ineffective [Unknown]

NARRATIVE: CASE EVENT DATE: 202006
